FAERS Safety Report 20164293 (Version 1)
Quarter: 2021Q4

REPORT INFORMATION
  Report Type: Spontaneous
  Country: CA (occurrence: CA)
  Receive Date: 20211209
  Receipt Date: 20211209
  Transmission Date: 20220304
  Serious: Yes (Life-Threatening, Other)
  Sender: FDA-Public Use
  Company Number: CA-Accord-214973

PATIENT
  Age: 35 Year
  Sex: Female
  Weight: 72 kg

DRUGS (8)
  1. TEMOZOLOMIDE [Suspect]
     Active Substance: TEMOZOLOMIDE
     Indication: Glioblastoma
     Dosage: DAILY WITH RADIATION
     Route: 048
     Dates: start: 20200707, end: 20200804
  2. TINZAPARIN [Concomitant]
     Active Substance: TINZAPARIN
     Indication: Thrombosis
     Dosage: DAILY DOSE : 12000
     Route: 058
     Dates: start: 20200723
  3. DILANTIN [Concomitant]
     Active Substance: PHENYTOIN
     Indication: Seizure
     Dosage: 100MG BID
     Route: 048
     Dates: start: 20201005
  4. FAMOTIDINE [Concomitant]
     Active Substance: FAMOTIDINE
     Indication: Gastrooesophageal reflux disease
     Dosage: 20MG BID
     Route: 048
  5. PHENYTOIN [Concomitant]
     Active Substance: PHENYTOIN
  6. DEXAMETHASONE [Concomitant]
     Active Substance: DEXAMETHASONE
  7. KEPPRA [Concomitant]
     Active Substance: LEVETIRACETAM
  8. ONDANSETRON [Concomitant]
     Active Substance: ONDANSETRON

REACTIONS (6)
  - Thrombocytopenia [Recovering/Resolving]
  - Fatigue [Recovered/Resolved]
  - Nausea [Recovered/Resolved]
  - Haemoglobin decreased [Unknown]
  - Platelet transfusion [Unknown]
  - Neutrophil count decreased [Unknown]
